FAERS Safety Report 12779257 (Version 2)
Quarter: 2019Q2

REPORT INFORMATION
  Report Type: Spontaneous
  Country: US (occurrence: US)
  Receive Date: 20160926
  Receipt Date: 20190621
  Transmission Date: 20190711
  Serious: No
  Sender: FDA-Public Use
  Company Number: US-JAZZ-2016-US-011346

PATIENT
  Sex: Female

DRUGS (41)
  1. LORATADINE. [Concomitant]
     Active Substance: LORATADINE
  2. EC-NAPROSYN [Concomitant]
     Active Substance: NAPROXEN
  3. FLUTICASONE PROPIONATE. [Concomitant]
     Active Substance: FLUTICASONE PROPIONATE
  4. KLONOPIN [Concomitant]
     Active Substance: CLONAZEPAM
  5. SODIUM CHLORIDE. [Concomitant]
     Active Substance: SODIUM CHLORIDE
  6. TYLENOL EXTRA STRENGTH [Concomitant]
     Active Substance: ACETAMINOPHEN
  7. XYREM [Suspect]
     Active Substance: SODIUM OXYBATE
     Indication: NARCOLEPSY
     Dosage: 2.25 G, BID
     Route: 048
     Dates: start: 200405, end: 200407
  8. XYREM [Suspect]
     Active Substance: SODIUM OXYBATE
     Dosage: 5.25 G, FIRST DOSE
     Route: 048
     Dates: start: 201605
  9. CHROMIUM PICOLINATE [Concomitant]
     Active Substance: CHROMIUM PICOLINATE
  10. FISH OIL [Concomitant]
     Active Substance: FISH OIL
  11. VITAMIN D3 [Concomitant]
     Active Substance: CHOLECALCIFEROL
  12. LIDOCAINE. [Concomitant]
     Active Substance: LIDOCAINE
  13. GAS-X MAX STRENGTH [Concomitant]
  14. AMBIEN [Concomitant]
     Active Substance: ZOLPIDEM TARTRATE
  15. DDAVP [Concomitant]
     Active Substance: DESMOPRESSIN ACETATE
  16. GAS-X [Concomitant]
     Active Substance: DIMETHICONE
  17. LUGOL [Concomitant]
     Active Substance: IODINE\POTASSIUM IODIDE
  18. VYVANSE [Concomitant]
     Active Substance: LISDEXAMFETAMINE DIMESYLATE
  19. FLONASE ALLERGY RELIEF [Concomitant]
     Active Substance: FLUTICASONE PROPIONATE
  20. MIRALAX [Concomitant]
     Active Substance: POLYETHYLENE GLYCOL 3350
  21. SYSTANE BALANCE [Concomitant]
     Active Substance: PROPYLENE GLYCOL
  22. TYLENOL EXTRA STRENGTH [Concomitant]
     Active Substance: ACETAMINOPHEN
  23. CYCLOBENZAPRINE. [Concomitant]
     Active Substance: CYCLOBENZAPRINE
  24. XYREM [Suspect]
     Active Substance: SODIUM OXYBATE
     Dosage: DOSE ADJUSTMENTS
     Route: 048
     Dates: start: 200407, end: 201605
  25. ADVAIR HFA [Concomitant]
     Active Substance: FLUTICASONE PROPIONATE\SALMETEROL XINAFOATE
  26. CHLORELLA SPP. [Concomitant]
  27. CYTOMEL [Concomitant]
     Active Substance: LIOTHYRONINE SODIUM
  28. NALTREXONE HCL [Concomitant]
     Active Substance: NALTREXONE HYDROCHLORIDE
  29. SYNTHROID [Concomitant]
     Active Substance: LEVOTHYROXINE SODIUM
  30. MAGNESIUM [Concomitant]
     Active Substance: MAGNESIUM
  31. PLANTAGO OVATA [Concomitant]
     Active Substance: HERBALS\PLANTAGO OVATA LEAF
  32. REFRESH TEARS [Concomitant]
     Active Substance: CARBOXYMETHYLCELLULOSE SODIUM
  33. CELEBREX [Concomitant]
     Active Substance: CELECOXIB
  34. MELATONIN [Concomitant]
     Active Substance: MELATONIN
  35. XYREM [Suspect]
     Active Substance: SODIUM OXYBATE
     Dosage: 4.25 G, SECOND DOSE
     Route: 048
     Dates: start: 201605
  36. ESOMEPRAZOLE MAGNESIUM. [Concomitant]
     Active Substance: ESOMEPRAZOLE MAGNESIUM
  37. PROAIR HFA [Concomitant]
     Active Substance: ALBUTEROL SULFATE
  38. BORIC ACID [Concomitant]
     Active Substance: BORIC ACID
  39. NASONEX [Concomitant]
     Active Substance: MOMETASONE FUROATE
  40. PREVACID [Concomitant]
     Active Substance: LANSOPRAZOLE
  41. DOXEPIN [Concomitant]
     Active Substance: DOXEPIN

REACTIONS (2)
  - Turbinoplasty [Unknown]
  - Rotator cuff syndrome [Recovered/Resolved]

NARRATIVE: CASE EVENT DATE: 2006
